FAERS Safety Report 18199788 (Version 2)
Quarter: 2020Q4

REPORT INFORMATION
  Report Type: Report from Study
  Country: GT (occurrence: GT)
  Receive Date: 20200826
  Receipt Date: 20201029
  Transmission Date: 20210113
  Serious: Yes (Other)
  Sender: FDA-Public Use
  Company Number: NVSC2020GT162696

PATIENT
  Sex: Male

DRUGS (1)
  1. FINGOLIMOD. [Suspect]
     Active Substance: FINGOLIMOD
     Indication: MULTIPLE SCLEROSIS
     Dosage: 0.5 MG, QD
     Route: 048
     Dates: start: 20190712

REACTIONS (6)
  - Choking [Unknown]
  - Cough [Unknown]
  - Influenza [Unknown]
  - Malaise [Unknown]
  - Paternal exposure during pregnancy [Unknown]
  - COVID-19 [Unknown]
